FAERS Safety Report 9118399 (Version 1)
Quarter: 2013Q1

REPORT INFORMATION
  Report Type: Spontaneous
  Country: US (occurrence: None)
  Receive Date: 20130128
  Receipt Date: 20130128
  Transmission Date: 20140127
  Serious: Yes (Other)
  Sender: FDA-Public Use
  Company Number: 54973 AE # 1198

PATIENT
  Age: 36 Year
  Sex: Male

DRUGS (1)
  1. HYLAND^S RESTFUL LEGS TABLETS [Suspect]
     Indication: PYREXIA
     Dosage: 2-3 TABS QHS X 5 MONTHS

REACTIONS (7)
  - Disorientation [None]
  - Dizziness [None]
  - Hallucination [None]
  - Respiratory disorder [None]
  - Gait disturbance [None]
  - Dysphonia [None]
  - Somnolence [None]
